FAERS Safety Report 24973180 (Version 4)
Quarter: 2025Q2

REPORT INFORMATION
  Report Type: Report from Study
  Country: CA (occurrence: CA)
  Receive Date: 20250216
  Receipt Date: 20250609
  Transmission Date: 20250717
  Serious: Yes (Life-Threatening, Hospitalization, Other)
  Sender: AMGEN
  Company Number: CA-AMGEN-CANSL2023154127

PATIENT
  Age: 51 Year
  Sex: Male

DRUGS (4)
  1. AVSOLA [Suspect]
     Active Substance: INFLIXIMAB-AXXQ
     Indication: Crohn^s disease
     Dosage: 7 MILLIGRAM/KILOGRAM, Q8WK
     Route: 065
     Dates: start: 20220413
  2. AVSOLA [Suspect]
     Active Substance: INFLIXIMAB-AXXQ
     Dosage: 7 MILLIGRAM/KILOGRAM, Q8WK
     Route: 065
  3. AVSOLA [Suspect]
     Active Substance: INFLIXIMAB-AXXQ
     Dosage: 7 MILLIGRAM/KILOGRAM, Q8WK
     Route: 065
  4. AVSOLA [Suspect]
     Active Substance: INFLIXIMAB-AXXQ
     Dosage: 7 MILLIGRAM/KILOGRAM, Q8WK
     Route: 065

REACTIONS (10)
  - Pneumonia [Unknown]
  - Influenza [Unknown]
  - Anal abscess [Recovered/Resolved]
  - Osteomyelitis [Unknown]
  - Hypertension [Unknown]
  - Localised infection [Unknown]
  - Abdominal pain [Unknown]
  - Product dose omission issue [Unknown]
  - Vomiting [Unknown]
  - Headache [Unknown]

NARRATIVE: CASE EVENT DATE: 20241001
